FAERS Safety Report 5196352-8 (Version None)
Quarter: 2006Q4

REPORT INFORMATION
  Report Type: 
  Country: None (occurrence: None)
  Receive Date: 20061222
  Receipt Date: 20061214
  Transmission Date: 20070319
  Serious: Yes (Life-Threatening, Hospitalization, Other)
  Sender: FDA-Public Use
  Company Number: 2006103756

PATIENT
  Age: 54 Year
  Sex: Female
  Weight: 45 kg

DRUGS (4)
  1. LIPITOR [Suspect]
     Indication: HYPERLIPIDAEMIA
     Dosage: 10 MG (10 MG, 1 IN1  D), ORAL
     Route: 048
     Dates: start: 20030218, end: 20060821
  2. TELMISARTAN [Concomitant]
  3. DIPYRIDAMOLE [Concomitant]
  4. PREDNISOLONE [Concomitant]

REACTIONS (14)
  - ALANINE AMINOTRANSFERASE INCREASED [None]
  - ASPARTATE AMINOTRANSFERASE INCREASED [None]
  - BILIRUBIN CONJUGATED INCREASED [None]
  - BLOOD ALKALINE PHOSPHATASE INCREASED [None]
  - BLOOD BILIRUBIN INCREASED [None]
  - BLOOD LACTATE DEHYDROGENASE INCREASED [None]
  - GAMMA-GLUTAMYLTRANSFERASE INCREASED [None]
  - LIVER DISORDER [None]
  - NAUSEA [None]
  - PANCREATITIS [None]
  - PAROTID GLAND ENLARGEMENT [None]
  - PYREXIA [None]
  - SJOGREN'S SYNDROME [None]
  - VOMITING [None]
